FAERS Safety Report 5493253-2 (Version None)
Quarter: 2007Q4

REPORT INFORMATION
  Report Type: 
  Country: None (occurrence: None)
  Receive Date: 20071022
  Receipt Date: 20071022
  Transmission Date: 20080405
  Serious: Yes (Other)
  Sender: FDA-Public Use
  Company Number: None

PATIENT
  Age: 46 Year
  Sex: Male
  Weight: 111.1313 kg

DRUGS (2)
  1. METOPROLOL SUCCINATE EXTENDED RELEASE [Suspect]
     Indication: BLOOD PRESSURE MANAGEMENT
     Dosage: 100MG SR 1 QD PO
     Route: 048
     Dates: start: 20070815, end: 20070915
  2. METOPROLOL SUCCINATE EXTENDED RELEASE [Suspect]
     Indication: HYPERTENSION
     Dosage: 100MG SR 1 QD PO
     Route: 048
     Dates: start: 20070815, end: 20070915

REACTIONS (2)
  - BLOOD PRESSURE INCREASED [None]
  - HEADACHE [None]
